FAERS Safety Report 5423120-1 (Version None)
Quarter: 2007Q3

REPORT INFORMATION
  Report Type: 
  Country: None (occurrence: None)
  Receive Date: 20070821
  Receipt Date: 20070806
  Transmission Date: 20080115
  Serious: Yes (Hospitalization)
  Sender: FDA-Public Use
  Company Number: 2006002361

PATIENT
  Age: 16 Year
  Sex: Female

DRUGS (7)
  1. ERLOTINIB (TABLET) (ERLOTINIB HC1) [Suspect]
     Indication: BRAIN NEOPLASM MALIGNANT
     Dosage: 225 MG,ORAL ; 125 MG,ORAL ; 150 MG;ORAL
     Route: 048
     Dates: start: 20061110, end: 20061114
  2. ERLOTINIB (TABLET) (ERLOTINIB HC1) [Suspect]
     Indication: BRAIN NEOPLASM MALIGNANT
     Dosage: 225 MG,ORAL ; 125 MG,ORAL ; 150 MG;ORAL
     Route: 048
     Dates: start: 20061024, end: 20061123
  3. ERLOTINIB (TABLET) (ERLOTINIB HC1) [Suspect]
     Indication: BRAIN NEOPLASM MALIGNANT
     Dosage: 225 MG,ORAL ; 125 MG,ORAL ; 150 MG;ORAL
     Route: 048
     Dates: start: 20061115, end: 20061123
  4. MOPRAL (OMEPRAZOLE) [Concomitant]
  5. NEURONTIN [Concomitant]
  6. SOLUPRED (PREDNISOLONE SODOUM SULFOBENZOATE) [Concomitant]
  7. BETAHISTINE (BETAHISTINE) [Concomitant]

REACTIONS (3)
  - ASTHENIA [None]
  - INTRACRANIAL PRESSURE INCREASED [None]
  - TUMOUR HAEMORRHAGE [None]
